FAERS Safety Report 6284445-3 (Version None)
Quarter: 2009Q3

REPORT INFORMATION
  Report Type: 
  Country: None (occurrence: None)
  Receive Date: 20090727
  Receipt Date: 20090709
  Transmission Date: 20100115
  Serious: Yes (Hospitalization)
  Sender: FDA-Public Use
  Company Number: PL-BAYER-200923454GPV

PATIENT
  Age: 61 Year
  Sex: Male

DRUGS (2)
  1. ULTRAVIST 370 [Suspect]
     Indication: COMPUTERISED TOMOGRAM HEAD
     Dosage: 500 ML BOTTLE
     Route: 042
     Dates: start: 20090615, end: 20090615
  2. UNKNOWN NEURO DRUGS [Concomitant]
     Indication: NERVOUS SYSTEM DISORDER

REACTIONS (5)
  - BALANCE DISORDER [None]
  - BLOOD PRESSURE INCREASED [None]
  - DYSPHAGIA [None]
  - MYDRIASIS [None]
  - OCULAR HYPERAEMIA [None]
